FAERS Safety Report 6691305-2 (Version None)
Quarter: 2010Q2

REPORT INFORMATION
  Report Type: 
  Country: None (occurrence: None)
  Receive Date: 20100419
  Receipt Date: 20100402
  Transmission Date: 20101027
  Serious: Yes (Other)
  Sender: FDA-Public Use
  Company Number: CTI_01177_2010

PATIENT
  Age: 60 Year
  Sex: Male

DRUGS (1)
  1. SPECTRACEF [Suspect]
     Indication: DRUG USE FOR UNKNOWN INDICATION
     Dosage: DF ORAL
     Route: 048
     Dates: start: 20080301, end: 20080301

REACTIONS (1)
  - STEVENS-JOHNSON SYNDROME [None]
